FAERS Safety Report 6710367-7 (Version None)
Quarter: 2010Q2

REPORT INFORMATION
  Report Type: 
  Country: None (occurrence: None)
  Receive Date: 20100403
  Receipt Date: 20100423
  Transmission Date: 20101027
  Serious: Yes (Death, Other)
  Sender: FDA-Public Use
  Company Number: 009596

PATIENT
  Age: 57 Year
  Sex: Male

DRUGS (4)
  1. BUSULFEX [Suspect]
     Indication: STEM CELL TRANSPLANT
     Dosage: 0.8 MG/KG, INTRAVENOUS
     Route: 042
  2. CYCLOPHOSPHAMIDE [Concomitant]
  3. METHOTREXATE 9METHOTREXATE) [Concomitant]
  4. CYCLOSPORINE [Concomitant]

REACTIONS (1)
  - LEUKAEMIA RECURRENT [None]
